FAERS Safety Report 6553912-7 (Version None)
Quarter: 2010Q1

REPORT INFORMATION
  Report Type: 
  Country: None (occurrence: None)
  Receive Date: 20100127
  Receipt Date: 20100105
  Transmission Date: 20100710
  Serious: No
  Sender: FDA-Public Use
  Company Number: US-BAYER-201011120NA

PATIENT

DRUGS (1)
  1. MAGNEVIST [Suspect]
     Indication: NUCLEAR MAGNETIC RESONANCE IMAGING
     Dosage: VIA POWER INJECTOR AT A RATE OF 2 ML/SECOND; 3 LOT #'S: 20 ML, 92084A; 15 ML, 84049C; 10 ML, 84516BB
     Route: 042
     Dates: start: 20091229, end: 20091229

REACTIONS (1)
  - VOMITING [None]
